FAERS Safety Report 8644119 (Version 4)
Quarter: 2012Q4

REPORT INFORMATION
  Report Type: 
  Country: US (occurrence: US)
  Receive Date: 20120629
  Receipt Date: 20120905
  Transmission Date: 20130627
  Serious: Yes (Other)
  Sender: FDA-Public Use
  Company Number: US-JNJFOC-20120612771

PATIENT
  Age: 16 Year
  Sex: Male
  Weight: 62.3 kg

DRUGS (3)
  1. REMICADE [Suspect]
     Indication: CROHN^S DISEASE
     Dosage: approximately 40 infusions total
     Route: 042
     Dates: start: 20090630, end: 20120709
  2. EFFEXOR [Concomitant]
     Indication: ABNORMAL BEHAVIOUR
  3. PREVACID [Concomitant]
     Indication: GASTROOESOPHAGEAL REFLUX DISEASE

REACTIONS (1)
  - B-cell lymphoma [Unknown]
